FAERS Safety Report 5660172-8 (Version None)
Quarter: 2008Q1

REPORT INFORMATION
  Report Type: 
  Country: None (occurrence: None)
  Receive Date: 20080310
  Receipt Date: 20080310
  Transmission Date: 20080703
  Serious: Yes (Life-Threatening)
  Sender: FDA-Public Use
  Company Number: None

PATIENT
  Age: 41 Year
  Sex: Female
  Weight: 90.7194 kg

DRUGS (1)
  1. LUPRON [Suspect]
     Indication: MENORRHAGIA
     Dosage: 375  2X  OTHER
     Route: 050
     Dates: start: 20071228, end: 20080131

REACTIONS (4)
  - CHEST PAIN [None]
  - CONDITION AGGRAVATED [None]
  - HYPERTENSION [None]
  - PAIN IN JAW [None]
